FAERS Safety Report 4598893-0 (Version None)
Quarter: 2005Q1

REPORT INFORMATION
  Report Type: 
  Country: None (occurrence: None)
  Receive Date: 20050302
  Receipt Date: 20040211
  Transmission Date: 20050727
  Serious: Yes (Hospitalization)
  Sender: FDA-Public Use
  Company Number: 7455

PATIENT
  Age: 69 Year
  Sex: Female

DRUGS (14)
  1. METHOTREXATE [Suspect]
     Indication: MENINGITIS
     Dosage: 10 MG 2/WK; IT
     Route: 038
     Dates: start: 20031223, end: 20040120
  2. METHOTREXATE [Suspect]
     Indication: NEOPLASM
     Dosage: 10 MG 2/WK; IT
     Route: 038
     Dates: start: 20031223, end: 20040120
  3. METHOTREXATE [Suspect]
     Indication: MENINGITIS
     Dosage: 7.5 MG 2/WK; IT
     Route: 038
     Dates: start: 20040123, end: 20040130
  4. METHOTREXATE [Suspect]
     Indication: NEOPLASM
     Dosage: 7.5 MG 2/WK; IT
     Route: 038
     Dates: start: 20040123, end: 20040130
  5. FUROSEMIDE [Concomitant]
  6. MS CONTIN [Concomitant]
  7. ZOLOFT [Concomitant]
  8. MULTIVIT [Concomitant]
  9. CALCIUM GLUCONATE [Concomitant]
  10. SENOKOT [Concomitant]
  11. ACETAMINOPHEN [Concomitant]
  12. EPO [Concomitant]
  13. COMPAZINE [Concomitant]
  14. LORAZEPAM [Concomitant]

REACTIONS (4)
  - ARACHNOIDITIS [None]
  - CONFUSIONAL STATE [None]
  - DEHYDRATION [None]
  - DIFFICULTY IN WALKING [None]
